FAERS Safety Report 15132312 (Version 7)
Quarter: 2019Q2

REPORT INFORMATION
  Report Type: Report from Study
  Country: JP (occurrence: JP)
  Receive Date: 20180711
  Receipt Date: 20190628
  Transmission Date: 20190711
  Serious: Yes (Other)
  Sender: FDA-Public Use
  Company Number: JP-ASTRAZENECA-2018SE88422

PATIENT
  Age: 62 Year
  Sex: Female
  Weight: 51 kg

DRUGS (11)
  1. METOCLOPRAMIDE. [Concomitant]
     Active Substance: METOCLOPRAMIDE
     Indication: NAUSEA
     Route: 048
     Dates: start: 20180515
  2. NEXIUM [Concomitant]
     Active Substance: ESOMEPRAZOLE MAGNESIUM
     Route: 048
     Dates: start: 20180515
  3. LYNPARZA [Suspect]
     Active Substance: OLAPARIB
     Indication: OVARIAN CANCER
     Route: 048
     Dates: start: 20190130, end: 20190226
  4. LOXOPROFEN [Concomitant]
     Active Substance: LOXOPROFEN
     Route: 048
  5. LYNPARZA [Suspect]
     Active Substance: OLAPARIB
     Indication: OVARIAN CANCER
     Route: 048
     Dates: start: 20190313
  6. LOPERAMIDE [Concomitant]
     Active Substance: LOPERAMIDE
     Indication: DIARRHOEA
     Route: 048
     Dates: start: 20180515
  7. LYRICA [Concomitant]
     Active Substance: PREGABALIN
     Route: 048
  8. BELSOMRA [Concomitant]
     Active Substance: SUVOREXANT
     Route: 048
  9. LYNPARZA [Suspect]
     Active Substance: OLAPARIB
     Indication: OVARIAN CANCER
     Route: 048
     Dates: start: 20180514, end: 20180603
  10. LYNPARZA [Suspect]
     Active Substance: OLAPARIB
     Indication: OVARIAN CANCER
     Route: 048
     Dates: start: 20180611, end: 20180805
  11. LYNPARZA [Suspect]
     Active Substance: OLAPARIB
     Indication: OVARIAN CANCER
     Route: 048
     Dates: start: 20181121, end: 20190114

REACTIONS (8)
  - Purpura [Recovering/Resolving]
  - Anaemia [Recovering/Resolving]
  - Rash [Recovering/Resolving]
  - Cutaneous vasculitis [Recovering/Resolving]
  - Erythema [Recovering/Resolving]
  - Feeling hot [Unknown]
  - Rash [Unknown]
  - Pruritus [Unknown]

NARRATIVE: CASE EVENT DATE: 20180521
